FAERS Safety Report 16656722 (Version 1)
Quarter: 2019Q3

REPORT INFORMATION
  Report Type: Report from Study
  Country: US (occurrence: US)
  Receive Date: 20190801
  Receipt Date: 20190801
  Transmission Date: 20191004
  Serious: Yes (Other)
  Sender: FDA-Public Use
  Company Number: US-BAYER-2019-140417

PATIENT
  Age: 26 Year
  Sex: Female
  Weight: 64.4 kg

DRUGS (1)
  1. ASPIRIN 81 MG [Suspect]
     Active Substance: ASPIRIN
     Dosage: 81 MG, QD
     Route: 042

REACTIONS (4)
  - Premature labour [None]
  - Contraindicated product administered [None]
  - Maternal exposure during pregnancy [None]
  - Product monitoring error [None]
